FAERS Safety Report 9015803 (Version 1)
Quarter: 2013Q1

REPORT INFORMATION
  Report Type: Spontaneous
  Country: US (occurrence: None)
  Receive Date: 20130102
  Receipt Date: 20130102
  Transmission Date: 20140127
  Serious: Yes (Hospitalization)
  Sender: FDA-Public Use
  Company Number: DEXA20120017

PATIENT
  Age: 7 Year
  Sex: Female

DRUGS (4)
  1. DEXAMETHASONE ELIXIR (DEXAMETHASONE) (UNKNOWN) [Suspect]
     Indication: ACUTE LYMPHOCYTIC LEUKAEMIA
     Dosage: UNK, UNK, UNKNOWN
  2. VINCRISTINE (VINCRISTINE) (UNKNOWN) [Suspect]
     Indication: ACUTE LYMPHOCYTIC LEUKAEMIA
  3. METHOTREXATE (METHOTREXATE) (UNKNOWN) [Suspect]
     Indication: ACUTE LYMPHOCYTIC LEUKAEMIA
     Dosage: UNK, UNK, UNKNOWN
  4. LEUCOVORIN (FOLINIC ACID) (UNKNOWN) [Suspect]
     Indication: ACUTE LYMPHOCYTIC LEUKAEMIA

REACTIONS (4)
  - Osteonecrosis [None]
  - Fall [None]
  - Arthralgia [None]
  - Joint swelling [None]
